FAERS Safety Report 18344850 (Version 50)
Quarter: 2025Q3

REPORT INFORMATION
  Report Type: Spontaneous
  Country: IL (occurrence: IL)
  Receive Date: 20201005
  Receipt Date: 20250930
  Transmission Date: 20251020
  Serious: Yes (Hospitalization, Other)
  Sender: PFIZER
  Company Number: IL-PFIZER INC-2018400659

PATIENT
  Age: 50 Year
  Sex: Male

DRUGS (40)
  1. ELELYSO [Suspect]
     Active Substance: TALIGLUCERASE ALFA
     Indication: Gaucher^s disease
     Route: 042
     Dates: start: 20160301
  2. ELELYSO [Suspect]
     Active Substance: TALIGLUCERASE ALFA
     Route: 042
     Dates: start: 20170606, end: 20170606
  3. ELELYSO [Suspect]
     Active Substance: TALIGLUCERASE ALFA
     Route: 042
  4. ELELYSO [Suspect]
     Active Substance: TALIGLUCERASE ALFA
     Route: 042
  5. ELELYSO [Suspect]
     Active Substance: TALIGLUCERASE ALFA
     Route: 042
  6. ELELYSO [Suspect]
     Active Substance: TALIGLUCERASE ALFA
     Route: 042
  7. ELELYSO [Suspect]
     Active Substance: TALIGLUCERASE ALFA
     Route: 042
  8. ELELYSO [Suspect]
     Active Substance: TALIGLUCERASE ALFA
     Route: 042
  9. ELELYSO [Suspect]
     Active Substance: TALIGLUCERASE ALFA
     Route: 042
  10. ELELYSO [Suspect]
     Active Substance: TALIGLUCERASE ALFA
     Route: 042
  11. ELELYSO [Suspect]
     Active Substance: TALIGLUCERASE ALFA
     Route: 042
  12. ELELYSO [Suspect]
     Active Substance: TALIGLUCERASE ALFA
     Route: 042
  13. ELELYSO [Suspect]
     Active Substance: TALIGLUCERASE ALFA
     Dosage: 2X/WEEK
     Route: 042
  14. ELELYSO [Suspect]
     Active Substance: TALIGLUCERASE ALFA
     Route: 042
  15. ELELYSO [Suspect]
     Active Substance: TALIGLUCERASE ALFA
     Route: 042
     Dates: end: 20230216
  16. ELELYSO [Suspect]
     Active Substance: TALIGLUCERASE ALFA
     Route: 042
  17. ELELYSO [Suspect]
     Active Substance: TALIGLUCERASE ALFA
     Route: 042
     Dates: start: 20230507
  18. ELELYSO [Suspect]
     Active Substance: TALIGLUCERASE ALFA
     Route: 042
     Dates: start: 20230510, end: 20230510
  19. ELELYSO [Suspect]
     Active Substance: TALIGLUCERASE ALFA
     Route: 042
     Dates: start: 20230522, end: 20230522
  20. ELELYSO [Suspect]
     Active Substance: TALIGLUCERASE ALFA
     Route: 042
     Dates: start: 20230619
  21. ELELYSO [Suspect]
     Active Substance: TALIGLUCERASE ALFA
     Route: 042
     Dates: start: 20230710, end: 20230710
  22. ELELYSO [Suspect]
     Active Substance: TALIGLUCERASE ALFA
     Route: 042
     Dates: start: 20230831
  23. ELELYSO [Suspect]
     Active Substance: TALIGLUCERASE ALFA
     Route: 042
  24. ELELYSO [Suspect]
     Active Substance: TALIGLUCERASE ALFA
     Route: 042
     Dates: start: 20240208
  25. ELELYSO [Suspect]
     Active Substance: TALIGLUCERASE ALFA
     Route: 042
     Dates: start: 20240402, end: 20240402
  26. ELELYSO [Suspect]
     Active Substance: TALIGLUCERASE ALFA
     Route: 042
     Dates: start: 20240717, end: 20240717
  27. ELELYSO [Suspect]
     Active Substance: TALIGLUCERASE ALFA
     Route: 042
     Dates: start: 20240807, end: 20240807
  28. ELELYSO [Suspect]
     Active Substance: TALIGLUCERASE ALFA
     Route: 042
     Dates: start: 20240829
  29. ELELYSO [Suspect]
     Active Substance: TALIGLUCERASE ALFA
     Route: 042
     Dates: start: 20240911, end: 20240911
  30. ELELYSO [Suspect]
     Active Substance: TALIGLUCERASE ALFA
     Route: 042
     Dates: start: 20241007, end: 20241007
  31. ELELYSO [Suspect]
     Active Substance: TALIGLUCERASE ALFA
     Route: 042
     Dates: start: 20241028
  32. ELELYSO [Suspect]
     Active Substance: TALIGLUCERASE ALFA
     Route: 042
  33. ELELYSO [Suspect]
     Active Substance: TALIGLUCERASE ALFA
     Route: 042
  34. ELELYSO [Suspect]
     Active Substance: TALIGLUCERASE ALFA
     Route: 042
     Dates: start: 20250421, end: 20250421
  35. ELELYSO [Suspect]
     Active Substance: TALIGLUCERASE ALFA
     Route: 042
     Dates: start: 20250508
  36. ELELYSO [Suspect]
     Active Substance: TALIGLUCERASE ALFA
     Route: 042
     Dates: start: 20250526, end: 20250526
  37. ELELYSO [Suspect]
     Active Substance: TALIGLUCERASE ALFA
     Route: 042
     Dates: start: 20250630
  38. ELELYSO [Suspect]
     Active Substance: TALIGLUCERASE ALFA
     Route: 042
     Dates: start: 20250908
  39. ELELYSO [Suspect]
     Active Substance: TALIGLUCERASE ALFA
     Route: 042
     Dates: start: 20250929
  40. AMBROXOL [Concomitant]
     Active Substance: AMBROXOL
     Dosage: 4 DF, 1X/DAY

REACTIONS (18)
  - Retinal detachment [Unknown]
  - Visual field defect [Unknown]
  - Fall [Unknown]
  - Hand fracture [Recovering/Resolving]
  - Melanocytic naevus [Unknown]
  - Tendonitis [Unknown]
  - Oropharyngeal pain [Unknown]
  - Pyrexia [Unknown]
  - Paraesthesia oral [Recovered/Resolved]
  - Pain in extremity [Recovering/Resolving]
  - Erythema [Unknown]
  - Peripheral swelling [Unknown]
  - Gait disturbance [Unknown]
  - Limb injury [Recovering/Resolving]
  - Inappropriate schedule of product administration [Unknown]
  - Product dispensing error [Unknown]
  - Incorrect dose administered [Unknown]
  - Drug monitoring procedure not performed [Unknown]

NARRATIVE: CASE EVENT DATE: 20250401
